FAERS Safety Report 7085685-6 (Version None)
Quarter: 2010Q4

REPORT INFORMATION
  Report Type: 
  Country: None (occurrence: None)
  Receive Date: 20101105
  Receipt Date: 20101028
  Transmission Date: 20110411
  Serious: Yes (Other)
  Sender: FDA-Public Use
  Company Number: US-PFIZER INC-2010139294

PATIENT
  Sex: Female

DRUGS (1)
  1. LYRICA [Suspect]
     Indication: NEUROPATHY PERIPHERAL
     Dosage: 300 MG, 3X/DAY
     Route: 050

REACTIONS (2)
  - ABORTION SPONTANEOUS [None]
  - DEPRESSION [None]
